FAERS Safety Report 8564002-6 (Version None)
Quarter: 2012Q3

REPORT INFORMATION
  Report Type: 
  Country: None (occurrence: None)
  Receive Date: 20120803
  Receipt Date: 20120801
  Transmission Date: 20120928
  Serious: Yes (Other)
  Sender: FDA-Public Use
  Company Number: PHHY2012AU066471

PATIENT
  Sex: Male

DRUGS (1)
  1. CLOZARIL [Suspect]
     Dosage: 500 MG DAILY
     Route: 048
     Dates: start: 20090720, end: 20120529

REACTIONS (1)
  - LEFT VENTRICULAR DYSFUNCTION [None]
